FAERS Safety Report 19927883 (Version 1)
Quarter: 2021Q4

REPORT INFORMATION
  Report Type: Spontaneous
  Country: US (occurrence: US)
  Receive Date: 20211005
  Receipt Date: 20211005
  Transmission Date: 20220303
  Serious: Yes (Death)
  Sender: FDA-Public Use
  Company Number: None

PATIENT
  Sex: Female

DRUGS (3)
  1. VERZENIO [Suspect]
     Active Substance: ABEMACICLIB
     Indication: Breast cancer female
     Route: 048
     Dates: start: 20210910, end: 20211004
  2. AFINITOR [Concomitant]
     Active Substance: EVEROLIMUS
  3. XGEVA [Concomitant]
     Active Substance: DENOSUMAB

REACTIONS (3)
  - Vomiting [None]
  - Diarrhoea [None]
  - Weight decreased [None]
